FAERS Safety Report 14891538 (Version 1)
Quarter: 2018Q2

REPORT INFORMATION
  Report Type: Spontaneous
  Country: ES (occurrence: ES)
  Receive Date: 20180514
  Receipt Date: 20180514
  Transmission Date: 20180711
  Serious: Yes (Death, Life-Threatening, Hospitalization)
  Sender: FDA-Public Use
  Company Number: ES-PFIZER INC-2018195598

PATIENT
  Age: 82 Year
  Sex: Male

DRUGS (3)
  1. TIGECYCLINE. [Suspect]
     Active Substance: TIGECYCLINE
     Indication: ENTEROCOCCAL INFECTION
     Dosage: 100 MG, 2X/DAY
     Route: 042
     Dates: start: 20170811, end: 20170829
  2. MEROPENEM. [Concomitant]
     Active Substance: MEROPENEM
     Indication: ENTEROBACTER INFECTION
     Dosage: 2 G, 3X/DAY
     Route: 042
     Dates: start: 20170816, end: 20171003
  3. ENOXAPARINA SODICA [Concomitant]
     Active Substance: ENOXAPARIN SODIUM
     Indication: CARDIOVASCULAR EVENT PROPHYLAXIS
     Dosage: 40 MEQ, 1X/DAY
     Route: 058
     Dates: start: 20170719, end: 20170823

REACTIONS (1)
  - Disseminated intravascular coagulation [Recovered/Resolved]

NARRATIVE: CASE EVENT DATE: 20170820
